FAERS Safety Report 25034374 (Version 1)
Quarter: 2025Q1

REPORT INFORMATION
  Report Type: Spontaneous
  Country: US (occurrence: US)
  Receive Date: 20250304
  Receipt Date: 20250304
  Transmission Date: 20250409
  Serious: No
  Sender: ROCHE
  Company Number: US-ROCHE-10000215079

PATIENT
  Age: 51 Year
  Sex: Female
  Weight: 104.32 kg

DRUGS (3)
  1. ACTEMRA [Suspect]
     Active Substance: TOCILIZUMAB
     Indication: Rheumatoid arthritis
     Route: 058
     Dates: start: 202310
  2. XOLAIR [Suspect]
     Active Substance: OMALIZUMAB
     Indication: Chronic spontaneous urticaria
     Route: 058
  3. XOLAIR [Suspect]
     Active Substance: OMALIZUMAB

REACTIONS (9)
  - Contusion [Recovering/Resolving]
  - Tenderness [Unknown]
  - Device defective [Unknown]
  - Swelling [Recovered/Resolved]
  - Exposure via skin contact [Unknown]
  - Device malfunction [Unknown]
  - Needle issue [Unknown]
  - Pain [Recovering/Resolving]
  - Underdose [Unknown]

NARRATIVE: CASE EVENT DATE: 20250219
